FAERS Safety Report 10572780 (Version 1)
Quarter: 2014Q4

REPORT INFORMATION
  Report Type: Spontaneous
  Country: CA (occurrence: None)
  Receive Date: 20141107
  Receipt Date: 20141107
  Transmission Date: 20150529
  Serious: Yes (Other)
  Sender: FDA-Public Use
  Company Number: None

PATIENT
  Age: 28 Year
  Sex: Male
  Weight: 95.26 kg

DRUGS (1)
  1. SAPHRIS [Suspect]
     Active Substance: ASENAPINE MALEATE
     Indication: BIPOLAR DISORDER
     Dosage: 1301979-ECN AT BEDTIME TAKEN BY MOUTH
     Route: 048

REACTIONS (3)
  - Hypoaesthesia oral [None]
  - Hypoaesthesia [None]
  - Product taste abnormal [None]

NARRATIVE: CASE EVENT DATE: 20141106
